FAERS Safety Report 20627020 (Version 5)
Quarter: 2022Q3

REPORT INFORMATION
  Report Type: Spontaneous
  Country: US (occurrence: US)
  Receive Date: 20220323
  Receipt Date: 20220706
  Transmission Date: 20221027
  Serious: Yes (Other)
  Sender: FDA-Public Use
  Company Number: US-PFIZER INC-202200376758

PATIENT
  Age: 57 Year
  Sex: Female
  Weight: 51.701 kg

DRUGS (1)
  1. ESTRING [Suspect]
     Active Substance: ESTRADIOL
     Dosage: 2 MG (TRANS VAGINAL)
     Route: 067
     Dates: start: 20200710, end: 20220211

REACTIONS (15)
  - Hypertension [Recovering/Resolving]
  - Vulvovaginal discomfort [Recovering/Resolving]
  - Dysuria [Recovering/Resolving]
  - Abdominal distension [Recovering/Resolving]
  - Urticaria [Recovering/Resolving]
  - Vulvovaginal rash [Recovering/Resolving]
  - Rash [Not Recovered/Not Resolved]
  - Weight increased [Recovering/Resolving]
  - Localised oedema [Recovering/Resolving]
  - Pyrexia [Recovering/Resolving]
  - Chills [Recovering/Resolving]
  - Abdominal pain [Recovering/Resolving]
  - Abdominal discomfort [Recovering/Resolving]
  - Micturition urgency [Unknown]
  - Pruritus [Unknown]

NARRATIVE: CASE EVENT DATE: 20220201
